FAERS Safety Report 11959495 (Version 1)
Quarter: 2016Q1

REPORT INFORMATION
  Report Type: Spontaneous
  Country: CA (occurrence: CA)
  Receive Date: 20160126
  Receipt Date: 20160126
  Transmission Date: 20160526
  Serious: Yes (Life-Threatening, Hospitalization)
  Sender: FDA-Public Use
  Company Number: CA-ASTRAZENECA-2016SE06133

PATIENT
  Age: 51 Year
  Sex: Female

DRUGS (1)
  1. FORXIGA [Suspect]
     Active Substance: DAPAGLIFLOZIN
     Indication: TYPE 2 DIABETES MELLITUS
     Route: 048

REACTIONS (7)
  - Blood albumin decreased [Unknown]
  - Blood glucose decreased [Unknown]
  - Unresponsive to stimuli [Unknown]
  - Alanine aminotransferase increased [Unknown]
  - International normalised ratio increased [Unknown]
  - Renal injury [Unknown]
  - Gastroenteritis [Unknown]
